FAERS Safety Report 8580954-2 (Version None)
Quarter: 2012Q3

REPORT INFORMATION
  Report Type: 
  Country: None (occurrence: None)
  Receive Date: 20120809
  Receipt Date: 20120809
  Transmission Date: 20120928
  Serious: No
  Sender: FDA-Public Use
  Company Number: US-PFIZER INC-2012177534

PATIENT
  Age: 49 Year
  Sex: Female
  Weight: 79.365 kg

DRUGS (1)
  1. LYRICA [Suspect]
     Indication: FIBROMYALGIA
     Dosage: 150 MG, 2X/DAY
     Dates: end: 20120728

REACTIONS (7)
  - DYSGRAPHIA [None]
  - NAUSEA [None]
  - FEELING HOT [None]
  - WITHDRAWAL SYNDROME [None]
  - INSOMNIA [None]
  - FEELING ABNORMAL [None]
  - READING DISORDER [None]
